FAERS Safety Report 19367672 (Version 1)
Quarter: 2021Q2

REPORT INFORMATION
  Report Type: Spontaneous
  Country: US (occurrence: US)
  Receive Date: 20210602
  Receipt Date: 20210602
  Transmission Date: 20210717
  Serious: No
  Sender: FDA-Public Use
  Company Number: US-ROCHE-2661876

PATIENT
  Age: 59 Year
  Sex: Male
  Weight: 65.83 kg

DRUGS (3)
  1. SALINE [Concomitant]
     Active Substance: SODIUM CHLORIDE
  2. OCREVUS [Suspect]
     Active Substance: OCRELIZUMAB
     Indication: MULTIPLE SCLEROSIS
     Dosage: 300 MG AT 2 WEEKS, THEN 600 MG IN 6 MONTHS. ?SUBSEQUENT DOSE RECEIVED ON: 19/MAR/2020
     Route: 042
     Dates: start: 20200305
  3. MELOXAM [Concomitant]
     Indication: ARTHRITIS

REACTIONS (1)
  - Pollakiuria [Recovered/Resolved]

NARRATIVE: CASE EVENT DATE: 20200305
